FAERS Safety Report 24677741 (Version 1)
Quarter: 2024Q4

REPORT INFORMATION
  Report Type: Spontaneous
  Country: CH (occurrence: CH)
  Receive Date: 20241129
  Receipt Date: 20241129
  Transmission Date: 20250115
  Serious: Yes (Other)
  Sender: AMGEN
  Company Number: CH-Vifor (International) Inc.-VIT-2024-09056

PATIENT
  Sex: Male

DRUGS (3)
  1. TAVNEOS [Suspect]
     Active Substance: AVACOPAN
     Indication: Product used for unknown indication
     Dosage: ADMINISTRATED VIA GASTRIC TUBE
     Route: 065
     Dates: start: 20240913
  2. METHYLPREDNISOLONE [Concomitant]
     Active Substance: METHYLPREDNISOLONE
     Indication: Product used for unknown indication
     Dosage: ON 8-SEP-2024 AND 10-SEP-2024
     Route: 040
     Dates: start: 20240908
  3. CYCLOPHOSPHAMIDE [Concomitant]
     Active Substance: CYCLOPHOSPHAMIDE
     Indication: Product used for unknown indication
     Dosage: INTRAVENOUSLY 600 MG OF CYCLOPHOSPHAMIDE ON 24-AUG-2024 AND ON 05-SEP-2024
     Route: 040
     Dates: start: 20240824

REACTIONS (5)
  - Klebsiella infection [Unknown]
  - Staphylococcal infection [Unknown]
  - Infection [Recovering/Resolving]
  - Wrong technique in product usage process [Unknown]
  - Off label use [Unknown]

NARRATIVE: CASE EVENT DATE: 20240101
